FAERS Safety Report 5692039-3 (Version None)
Quarter: 2008Q2

REPORT INFORMATION
  Report Type: 
  Country: None (occurrence: None)
  Receive Date: 20080402
  Receipt Date: 20080319
  Transmission Date: 20081010
  Serious: Yes (Other)
  Sender: FDA-Public Use
  Company Number: IT-GILEAD-2007-0014171

PATIENT
  Age: 77 Year
  Sex: Female

DRUGS (2)
  1. VIREAD [Suspect]
     Indication: HEPATITIS B
     Dates: start: 20021201, end: 20041201
  2. HEPSERA [Suspect]
     Dates: start: 20041201

REACTIONS (2)
  - DRUG INEFFECTIVE [None]
  - GENOTYPE DRUG RESISTANCE TEST NEGATIVE [None]
